FAERS Safety Report 7445352-3 (Version None)
Quarter: 2011Q2

REPORT INFORMATION
  Report Type: 
  Country: None (occurrence: None)
  Receive Date: 20110429
  Receipt Date: 20100823
  Transmission Date: 20111010
  Serious: No
  Sender: FDA-Public Use
  Company Number: A0878169A

PATIENT
  Age: 18 Year
  Sex: Female
  Weight: 50 kg

DRUGS (1)
  1. ZOFRAN [Suspect]
     Indication: NAUSEA
     Dosage: 8MG UNKNOWN
     Route: 048
     Dates: start: 20100822

REACTIONS (1)
  - PRURITUS [None]
